FAERS Safety Report 5707220-4 (Version None)
Quarter: 2008Q2

REPORT INFORMATION
  Report Type: 
  Country: None (occurrence: None)
  Receive Date: 20080416
  Receipt Date: 20080409
  Transmission Date: 20081010
  Serious: Yes (Other)
  Sender: FDA-Public Use
  Company Number: IE-WYE-G01376308

PATIENT
  Sex: Female

DRUGS (1)
  1. EFFEXOR XR [Suspect]
     Dosage: 75MG, FREQUENCY UNKNOWN

REACTIONS (5)
  - CHEST DISCOMFORT [None]
  - HYPERSENSITIVITY [None]
  - PARAESTHESIA ORAL [None]
  - SWOLLEN TONGUE [None]
  - TRISMUS [None]
